FAERS Safety Report 6180516-0 (Version None)
Quarter: 2009Q2

REPORT INFORMATION
  Report Type: 
  Country: None (occurrence: None)
  Receive Date: 20090506
  Receipt Date: 20090429
  Transmission Date: 20091009
  Serious: Yes (Hospitalization)
  Sender: FDA-Public Use
  Company Number: CL-JNJFOC-20090401997

PATIENT
  Sex: Female
  Weight: 86.9 kg

DRUGS (30)
  1. GOLIMUMAB [Suspect]
     Route: 058
  2. GOLIMUMAB [Suspect]
     Route: 058
  3. GOLIMUMAB [Suspect]
     Route: 058
  4. GOLIMUMAB [Suspect]
     Route: 058
  5. GOLIMUMAB [Suspect]
     Route: 058
  6. GOLIMUMAB [Suspect]
     Route: 058
  7. GOLIMUMAB [Suspect]
     Route: 058
  8. GOLIMUMAB [Suspect]
     Route: 058
  9. GOLIMUMAB [Suspect]
     Route: 058
  10. GOLIMUMAB [Suspect]
     Route: 058
  11. GOLIMUMAB [Suspect]
     Route: 058
  12. GOLIMUMAB [Suspect]
     Route: 058
  13. GOLIMUMAB [Suspect]
     Route: 058
  14. GOLIMUMAB [Suspect]
     Route: 058
  15. GOLIMUMAB [Suspect]
     Route: 058
  16. GOLIMUMAB [Suspect]
     Route: 058
  17. GOLIMUMAB [Suspect]
     Route: 058
  18. GOLIMUMAB [Suspect]
     Indication: RHEUMATOID ARTHRITIS
     Route: 058
  19. PLACEBO [Suspect]
     Indication: RHEUMATOID ARTHRITIS
     Route: 048
  20. METHOTREXATE [Suspect]
     Indication: RHEUMATOID ARTHRITIS
     Route: 048
  21. FUROSEMIDE [Concomitant]
     Indication: HYPERTENSION
     Route: 048
  22. ASPIRIN [Concomitant]
     Route: 048
  23. FOLIC ACID [Concomitant]
     Indication: PROPHYLAXIS
     Route: 048
  24. FLUOXETINE [Concomitant]
     Indication: DEPRESSION
     Route: 048
  25. LOSARTAN POTASIC [Concomitant]
     Indication: HYPERTENSION
     Route: 048
  26. BUDESONIDE [Concomitant]
     Indication: CHRONIC OBSTRUCTIVE PULMONARY DISEASE
     Route: 055
  27. OMEPRAZOLE [Concomitant]
     Indication: PROPHYLAXIS
     Route: 048
  28. PREDNISONE [Concomitant]
     Indication: RHEUMATOID ARTHRITIS
     Route: 048
  29. BERODUAL [Concomitant]
     Indication: CHRONIC OBSTRUCTIVE PULMONARY DISEASE
     Route: 055
  30. METHOTREXATE [Concomitant]
     Route: 048

REACTIONS (1)
  - CELLULITIS [None]
